FAERS Safety Report 25877133 (Version 1)
Quarter: 2025Q4

REPORT INFORMATION
  Report Type: Spontaneous
  Country: US (occurrence: US)
  Receive Date: 20251003
  Receipt Date: 20251003
  Transmission Date: 20260117
  Serious: Yes (Hospitalization, Other)
  Sender: UNITED THERAPEUTICS
  Company Number: US-UNITED THERAPEUTICS-UNT-2025-033789

PATIENT
  Age: 9 Year
  Sex: Female
  Weight: 34.014 kg

DRUGS (11)
  1. REMODULIN [Suspect]
     Active Substance: TREPROSTINIL
     Indication: Pulmonary arterial hypertension
     Dosage: 0.12222 ?G/KG, CONTINUING
  2. REMODULIN [Suspect]
     Active Substance: TREPROSTINIL
     Dosage: 0.150 ?G/KG (2 ML/CASSETTE, AT INFUSION RATE 0.027 ML/HR), CONTINUING
  3. REMODULIN [Suspect]
     Active Substance: TREPROSTINIL
     Dosage: 0.13889 ?G/KG, CONTINUING
  4. REMODULIN [Suspect]
     Active Substance: TREPROSTINIL
     Dosage: 0.120 ?G/KG, CONTINUING
  5. REMODULIN [Suspect]
     Active Substance: TREPROSTINIL
     Dosage: 0.144 ?G/KG (AT PUMP RATE OF 26 UL/HR), CONTINUING
  6. REMODULIN [Suspect]
     Active Substance: TREPROSTINIL
     Dosage: 0.138 ?G/KG (AT PUMP RATE OF 25 UL/HR), CONTINUING
  7. REMODULIN [Suspect]
     Active Substance: TREPROSTINIL
     Dosage: 0.122 ?G/KG (AT PUMP RATE OF 22 UL/HR), CONTINUING
  8. REMODULIN [Suspect]
     Active Substance: TREPROSTINIL
     Dosage: UNK, CONTINUING
  9. REMODULIN [Suspect]
     Active Substance: TREPROSTINIL
     Indication: Pulmonary arterial hypertension
     Dosage: 0.122 ?G/KG, CONTINUING
     Route: 041
  10. REMODULIN [Suspect]
     Active Substance: TREPROSTINIL
     Dosage: UNK, CONTINUING
     Route: 041
  11. SILDENAFIL [Concomitant]
     Active Substance: SILDENAFIL
     Indication: Pulmonary arterial hypertension
     Dosage: UNK

REACTIONS (9)
  - Right ventricular failure [Recovered/Resolved]
  - Right ventricular systolic pressure increased [Recovering/Resolving]
  - Pericardial effusion [Recovered/Resolved]
  - Hypotension [Recovered/Resolved]
  - N-terminal prohormone brain natriuretic peptide increased [Recovered/Resolved]
  - Presyncope [Recovered/Resolved]
  - Dyspnoea exertional [Recovered/Resolved]
  - Tachycardia [Recovered/Resolved]
  - Walking distance test abnormal [Recovering/Resolving]

NARRATIVE: CASE EVENT DATE: 20180514
